FAERS Safety Report 15820662 (Version 2)
Quarter: 2019Q2

REPORT INFORMATION
  Report Type: Spontaneous
  Country: US (occurrence: US)
  Receive Date: 20190114
  Receipt Date: 20190527
  Transmission Date: 20190711
  Serious: No
  Sender: FDA-Public Use
  Company Number: US-SA-2018SA020899

PATIENT
  Age: 12 Year
  Sex: Male
  Weight: 36.06 kg

DRUGS (20)
  1. EPINEPHRINE. [Concomitant]
     Active Substance: EPINEPHRINE
     Indication: ANAPHYLACTIC REACTION
     Dosage: 0.3 MG; AS DIRECTED
     Route: 030
     Dates: start: 20170106
  2. LORATADINE. [Concomitant]
     Active Substance: LORATADINE
     Indication: PREMEDICATION
     Dosage: 10 MG
     Route: 048
     Dates: start: 20190520
  3. ALBUTEROL [SALBUTAMOL SULFATE] [Concomitant]
     Active Substance: ALBUTEROL SULFATE
     Dosage: 2.5 MG INHALATION EVERY 4 HOURS AS NEEDED
     Route: 065
     Dates: start: 20181217
  4. HEPARIN [Concomitant]
     Active Substance: HEPARIN SODIUM
     Indication: FLUSHING
     Dosage: 100 U/ML; AS DIRECTED
     Route: 065
     Dates: start: 20170106
  5. SODIUM CHLORIDE. [Concomitant]
     Active Substance: SODIUM CHLORIDE
     Indication: FLUSHING
     Dosage: .9 %; AS DIRECTED
     Route: 042
     Dates: start: 20170106
  6. LMX [LIDOCAINE] [Concomitant]
     Indication: PREMEDICATION
     Dosage: 4 %; PRIOR TO TREATMENT
     Route: 061
     Dates: start: 20170106
  7. ACETAMINOPHEN. [Concomitant]
     Active Substance: ACETAMINOPHEN
     Indication: PREMEDICATION
     Dosage: 325 MG
     Route: 048
     Dates: start: 20170106
  8. DIPHENHYDRAMINE. [Concomitant]
     Active Substance: DIPHENHYDRAMINE
     Indication: ANAPHYLACTIC REACTION
     Dosage: 29 MG; AS NEEDED
     Route: 048
     Dates: start: 20170106
  9. SODIUM CHLORIDE. [Concomitant]
     Active Substance: SODIUM CHLORIDE
     Dosage: .9 %; AS DIRECTED
     Route: 042
     Dates: start: 20190520
  10. CLARITIN [CLARITHROMYCIN] [Concomitant]
     Active Substance: CLARITHROMYCIN
     Indication: PREMEDICATION
     Dosage: 10 MG
     Route: 048
     Dates: start: 20170106
  11. LMX [LIDOCAINE] [Concomitant]
     Dosage: 4 %; PRIOR TO TREATMENT
     Route: 061
     Dates: start: 20190520
  12. NORMAL SALINE [Concomitant]
     Active Substance: SODIUM CHLORIDE
     Indication: FLUSHING
     Dosage: 0.9 %; AS DIRECTED
     Route: 042
     Dates: start: 20170106
  13. EPINEPHRINE. [Concomitant]
     Active Substance: EPINEPHRINE
     Dosage: 0.3 MG; AS DIRECTED
     Route: 030
     Dates: start: 20190520
  14. ACETAMINOPHEN. [Concomitant]
     Active Substance: ACETAMINOPHEN
     Dosage: 325 MG
     Route: 048
     Dates: start: 20190520
  15. PROAIR HFA [Concomitant]
     Active Substance: ALBUTEROL SULFATE
     Dosage: 1 INHALATION AS NEEDED
     Route: 065
     Dates: start: 20181102
  16. DIPHENHYDRAMINE. [Concomitant]
     Active Substance: DIPHENHYDRAMINE
     Dosage: 29 MG, PRN
     Route: 048
     Dates: start: 20190520
  17. ALDURAZYME [Suspect]
     Active Substance: LARONIDASE
     Indication: MUCOPOLYSACCHARIDOSIS
     Dosage: .51 MG/KG,QW
     Route: 041
     Dates: start: 20161128
  18. NORMAL SALINE [Concomitant]
     Active Substance: SODIUM CHLORIDE
     Dosage: 0.9 %; AS DIRECTED
     Route: 042
     Dates: start: 20190520
  19. VENTOLIN HFA [Concomitant]
     Active Substance: ALBUTEROL SULFATE
     Dosage: 90MCG: EVERY 4 HOURS AS NEEDED
     Route: 065
     Dates: start: 20181217
  20. HEPARIN [Concomitant]
     Active Substance: HEPARIN SODIUM
     Dosage: 100 U/ML
     Route: 042
     Dates: start: 20190520

REACTIONS (2)
  - Fall [Unknown]
  - Nasopharyngitis [Unknown]

NARRATIVE: CASE EVENT DATE: 201712
